FAERS Safety Report 10220818 (Version 1)
Quarter: 2014Q2

REPORT INFORMATION
  Report Type: Spontaneous
  Country: US (occurrence: None)
  Receive Date: 20140605
  Receipt Date: 20140605
  Transmission Date: 20141212
  Serious: Yes (Other)
  Sender: FDA-Public Use
  Company Number: None

PATIENT
  Age: 2 Year
  Sex: Female
  Weight: 12.25 kg

DRUGS (1)
  1. SINGULAIR 5 MG [Suspect]
     Indication: ASTHMA
     Dosage: 1 PILL?ONCE DAILY?ORAL
     Route: 048
     Dates: start: 20140225, end: 20140520

REACTIONS (8)
  - Drug prescribing error [None]
  - Overdose [None]
  - Anxiety [None]
  - Hyperacusis [None]
  - Crying [None]
  - Emotional disorder [None]
  - Abnormal behaviour [None]
  - Panic attack [None]
